FAERS Safety Report 6526436-0 (Version None)
Quarter: 2010Q1

REPORT INFORMATION
  Report Type: 
  Country: None (occurrence: None)
  Receive Date: 20100105
  Receipt Date: 20090717
  Transmission Date: 20100710
  Serious: No
  Sender: FDA-Public Use
  Company Number: US-ELI_LILLY_AND_COMPANY-US200907004582

PATIENT
  Sex: Female
  Weight: 67.574 kg

DRUGS (8)
  1. FORTEO [Suspect]
     Indication: OSTEOPOROSIS
     Dosage: UNK, UNK
     Dates: start: 20090721
  2. PREDNISONE [Concomitant]
     Indication: POLYMYALGIA RHEUMATICA
     Dosage: 4 MG, UNK
  3. URIDINE TRIPHOSPHATE [Concomitant]
     Dosage: 150000 IU, WEEKLY (1/W)
  4. CALCIUM [Concomitant]
     Dosage: 500 MG, DAILY (1/D)
  5. POTASSIUM [Concomitant]
     Dosage: UNK, DAILY (1/D)
  6. DIORAN [Concomitant]
     Dosage: 160 MG, DAILY (1/D)
  7. DIORAN [Concomitant]
     Dosage: 12.5 MG, DAILY (1/D)
  8. NORVASC [Concomitant]
     Dosage: 5 MG, DAILY (1/D)

REACTIONS (1)
  - NO ADVERSE EVENT [None]
